FAERS Safety Report 14452226 (Version 1)
Quarter: 2018Q1

REPORT INFORMATION
  Report Type: Spontaneous
  Country: US (occurrence: US)
  Receive Date: 20180126
  Receipt Date: 20180126
  Transmission Date: 20180509
  Serious: No
  Sender: FDA-Public Use
  Company Number: None

PATIENT
  Age: 71 Year
  Sex: Male

DRUGS (10)
  1. AMPYRA [Suspect]
     Active Substance: DALFAMPRIDINE
     Indication: MULTIPLE SCLEROSIS
     Route: 048
     Dates: start: 201705, end: 201801
  2. BACLOFEN. [Concomitant]
     Active Substance: BACLOFEN
  3. LACTULOSE. [Concomitant]
     Active Substance: LACTULOSE
  4. DERMA-SMOOTHE/FS [Concomitant]
     Active Substance: FLUOCINOLONE ACETONIDE
  5. AMPICILLIN [Concomitant]
     Active Substance: AMPICILLIN
  6. SIMVASTATIN. [Concomitant]
     Active Substance: SIMVASTATIN
  7. ACETAMINOPHEN. [Concomitant]
     Active Substance: ACETAMINOPHEN
  8. FOSAMAX [Concomitant]
     Active Substance: ALENDRONATE SODIUM
  9. ALLOPURINOL. [Concomitant]
     Active Substance: ALLOPURINOL
  10. CALTRATE PLUS VIT D3 [Concomitant]

REACTIONS (2)
  - Therapy cessation [None]
  - Drug ineffective [None]

NARRATIVE: CASE EVENT DATE: 20180104
